FAERS Safety Report 8694012 (Version 2)
Quarter: 2012Q4

REPORT INFORMATION
  Report Type: 
  Country: US (occurrence: US)
  Receive Date: 20120731
  Receipt Date: 20120917
  Transmission Date: 20130627
  Serious: Yes (Other)
  Sender: FDA-Public Use
  Company Number: PHEH2012US014633

PATIENT
  Sex: Female

DRUGS (1)
  1. RECLAST [Suspect]
     Route: 042
     Dates: start: 20110617

REACTIONS (4)
  - Fall [Unknown]
  - Jaw disorder [Unknown]
  - Blood pressure abnormal [Unknown]
  - Malaise [Unknown]
